FAERS Safety Report 16539458 (Version 1)
Quarter: 2019Q3

REPORT INFORMATION
  Report Type: Spontaneous
  Country: IL (occurrence: IL)
  Receive Date: 20190708
  Receipt Date: 20190708
  Transmission Date: 20191004
  Serious: Yes (Other)
  Sender: FDA-Public Use
  Company Number: IL-TEVA-2019-IL-1074759

PATIENT
  Age: 40 Year
  Sex: Female

DRUGS (1)
  1. CARBOPLATIN CONCENTRATE FOR SOLUTION FOR INFUSION 10MG/ML [Suspect]
     Active Substance: CARBOPLATIN
     Dosage: 560MG
     Route: 065
     Dates: start: 20190318

REACTIONS (3)
  - Chest discomfort [Unknown]
  - Dyspnoea [Unknown]
  - Erythema [Unknown]
